FAERS Safety Report 6738795-4 (Version None)
Quarter: 2010Q2

REPORT INFORMATION
  Report Type: 
  Country: None (occurrence: None)
  Receive Date: 20100524
  Receipt Date: 20100511
  Transmission Date: 20101027
  Serious: Yes (Death)
  Sender: FDA-Public Use
  Company Number: DK-WATSON-2010-06648

PATIENT
  Age: 71 Year
  Sex: Female

DRUGS (2)
  1. METHYLPREDNISOLONE ACETATE [Suspect]
     Indication: ENDOCRINE OPHTHALMOPATHY
     Dosage: 3 G, SINGLE
     Route: 042
     Dates: start: 20031201
  2. METHYLPREDNISOLONE ACETATE [Suspect]
     Dosage: 5 G, SINGLE
     Route: 042
     Dates: start: 20030601

REACTIONS (3)
  - CARDIO-RESPIRATORY ARREST [None]
  - CORONARY ARTERY THROMBOSIS [None]
  - PULMONARY EMBOLISM [None]
